FAERS Safety Report 6902158-9 (Version None)
Quarter: 2010Q3

REPORT INFORMATION
  Report Type: 
  Country: None (occurrence: None)
  Receive Date: 20100803
  Receipt Date: 20100723
  Transmission Date: 20110219
  Serious: Yes (Other)
  Sender: FDA-Public Use
  Company Number: CA-MERCK-1007USA03381

PATIENT
  Age: 54 Year
  Sex: Male

DRUGS (20)
  1. CRIXIVAN [Suspect]
     Route: 048
  2. FUZEON [Suspect]
     Route: 058
  3. KALETRA [Suspect]
     Route: 065
  4. LAMIVUDINE [Suspect]
     Route: 065
  5. LAMIVUDINE [Suspect]
     Route: 065
  6. LAMIVUDINE [Suspect]
     Route: 065
  7. REYATAZ [Suspect]
     Route: 065
  8. REYATAZ [Suspect]
     Route: 065
  9. SAQUINAVIR [Suspect]
     Route: 065
  10. VIDEX [Suspect]
     Route: 065
  11. VIDEX [Suspect]
     Route: 065
  12. VIDEX [Suspect]
     Route: 065
  13. VIRAMUNE [Suspect]
     Route: 065
  14. VIRAMUNE [Suspect]
     Route: 065
  15. VIRAMUNE [Suspect]
     Route: 065
  16. VIREAD [Suspect]
     Route: 065
  17. ZIAGEN [Suspect]
     Route: 065
  18. ZIDOVUDINE [Suspect]
     Route: 065
  19. ZERIT [Suspect]
     Route: 065
  20. RITONAVIR [Suspect]
     Route: 065

REACTIONS (7)
  - BLOOD LACTIC ACID INCREASED [None]
  - DIPLOPIA [None]
  - DYSPHAGIA [None]
  - EYELID PTOSIS [None]
  - LIPODYSTROPHY ACQUIRED [None]
  - MITOCHONDRIAL TOXICITY [None]
  - PROGRESSIVE EXTERNAL OPHTHALMOPLEGIA [None]
